FAERS Safety Report 5393675-4 (Version None)
Quarter: 2007Q3

REPORT INFORMATION
  Report Type: 
  Country: None (occurrence: None)
  Receive Date: 20070723
  Receipt Date: 20070711
  Transmission Date: 20080115
  Serious: Yes (Death)
  Sender: FDA-Public Use
  Company Number: NL-TYCO HEALTHCARE/MALLINCKRODT-T200500015

PATIENT
  Sex: Male

DRUGS (3)
  1. OPTIRAY 300 [Suspect]
     Indication: COMPUTERISED TOMOGRAM ABDOMEN
     Dosage: 100 ML, SINGLE
     Route: 042
     Dates: start: 20050422, end: 20050422
  2. METFORMIN HCL [Concomitant]
  3. THIAZIDE DERIVATIVES [Concomitant]

REACTIONS (6)
  - ANAPHYLACTIC SHOCK [None]
  - BENIGN NEOPLASM OF ADRENAL GLAND [None]
  - BENIGN PROSTATIC HYPERPLASIA [None]
  - ELECTROMECHANICAL DISSOCIATION [None]
  - LEFT VENTRICULAR HYPERTROPHY [None]
  - VENTRICULAR FIBRILLATION [None]
